FAERS Safety Report 5593782-7 (Version None)
Quarter: 2008Q1

REPORT INFORMATION
  Report Type: 
  Country: None (occurrence: None)
  Receive Date: 20080116
  Receipt Date: 20080110
  Transmission Date: 20080703
  Serious: Yes (Hospitalization, Other)
  Sender: FDA-Public Use
  Company Number: FR-BOEHRINGER INGELHEIM PHARMACEUTICALS, INC.-2007-FF-00478FF

PATIENT
  Age: 33 Year
  Sex: Male
  Weight: 60 kg

DRUGS (7)
  1. APTIVUS [Suspect]
     Indication: HIV INFECTION
     Dosage: TPV/RTV 500/200MG B.I.D
     Route: 048
     Dates: start: 20050608, end: 20051219
  2. APTIVUS [Suspect]
     Dosage: TPV 500MG B.I.D
     Route: 048
     Dates: start: 20060208, end: 20060214
  3. APTIVUS [Suspect]
     Dosage: TPV 500MG ONCE
     Route: 048
     Dates: start: 20060214
  4. FUZEON [Concomitant]
     Indication: HIV INFECTION
     Route: 058
     Dates: start: 20050608, end: 20051219
  5. FUZEON [Concomitant]
     Route: 058
     Dates: start: 20060208
  6. VIREAD [Concomitant]
     Indication: HIV INFECTION
     Route: 048
     Dates: start: 20050608, end: 20051219
  7. KIVEXA [Concomitant]
     Indication: HIV INFECTION
     Route: 048
     Dates: start: 20050608, end: 20051219

REACTIONS (6)
  - ALANINE AMINOTRANSFERASE INCREASED [None]
  - ASPARTATE AMINOTRANSFERASE INCREASED [None]
  - BLOOD ALKALINE PHOSPHATASE INCREASED [None]
  - CYTOLYTIC HEPATITIS [None]
  - GAMMA-GLUTAMYLTRANSFERASE INCREASED [None]
  - OVERDOSE [None]
